FAERS Safety Report 19668632 (Version 1)
Quarter: 2021Q3

REPORT INFORMATION
  Report Type: Spontaneous
  Country: DE (occurrence: DE)
  Receive Date: 20210806
  Receipt Date: 20210806
  Transmission Date: 20211014
  Serious: Yes (Other)
  Sender: FDA-Public Use
  Company Number: DE-PFIZER INC-202100940129

PATIENT
  Age: 6 Decade
  Sex: Female

DRUGS (1)
  1. CHAMPIX [Suspect]
     Active Substance: VARENICLINE TARTRATE
     Dosage: UNK
     Dates: start: 202107

REACTIONS (3)
  - Chills [Unknown]
  - Alcohol poisoning [Unknown]
  - Fatigue [Unknown]

NARRATIVE: CASE EVENT DATE: 202107
